FAERS Safety Report 6027158-5 (Version None)
Quarter: 2008Q4

REPORT INFORMATION
  Report Type: 
  Country: None (occurrence: None)
  Receive Date: 20081222
  Receipt Date: 20081124
  Transmission Date: 20090506
  Serious: No
  Sender: FDA-Public Use
  Company Number: US-WYE-H06964008

PATIENT
  Age: 47 Year
  Sex: Female

DRUGS (6)
  1. PRISTIQ [Suspect]
     Indication: DEPRESSION
     Dosage: 50 MG 1X PER 1 DAY, ORAL
     Route: 048
     Dates: start: 20081122
  2. TEGRETOL [Concomitant]
  3. PRAVASTATIN [Concomitant]
  4. SYNTHROID [Concomitant]
  5. ESTRADIOL [Concomitant]
  6. PROGESTAN (PROGESTERONE) [Concomitant]

REACTIONS (2)
  - PANIC ATTACK [None]
  - TINNITUS [None]
